FAERS Safety Report 12499828 (Version 2)
Quarter: 2016Q3

REPORT INFORMATION
  Report Type: Report from Study
  Country: US (occurrence: US)
  Receive Date: 20160627
  Receipt Date: 20160721
  Transmission Date: 20161109
  Serious: Yes (Other)
  Sender: FDA-Public Use
  Company Number: US-JNJFOC-20151221953

PATIENT
  Age: 63 Year
  Sex: Female

DRUGS (22)
  1. TYLENOL [Concomitant]
     Active Substance: ACETAMINOPHEN
  2. PROTONIX [Concomitant]
     Active Substance: PANTOPRAZOLE SODIUM
  3. NYSTATIN. [Concomitant]
     Active Substance: NYSTATIN
  4. ALEVE [Concomitant]
     Active Substance: NAPROXEN SODIUM
  5. DUREZOL [Concomitant]
     Active Substance: DIFLUPREDNATE
  6. IMBRUVICA [Suspect]
     Active Substance: IBRUTINIB
     Indication: WALDENSTROM^S MACROGLOBULINAEMIA
     Route: 048
     Dates: start: 20151014
  7. CALCIUM [Concomitant]
     Active Substance: CALCIUM
  8. FOLIC ACID. [Concomitant]
     Active Substance: FOLIC ACID
  9. ABILIFY [Concomitant]
     Active Substance: ARIPIPRAZOLE
  10. FENTANYL. [Concomitant]
     Active Substance: FENTANYL
  11. OXYMORPHONE [Concomitant]
     Active Substance: OXYMORPHONE
  12. ACYCLOVIR. [Concomitant]
     Active Substance: ACYCLOVIR
  13. ZOLOFT [Concomitant]
     Active Substance: SERTRALINE HYDROCHLORIDE
  14. BYSTOLIC [Concomitant]
     Active Substance: NEBIVOLOL HYDROCHLORIDE
  15. GABAPENTIN. [Concomitant]
     Active Substance: GABAPENTIN
  16. LEVOTHYROXINE SODIUM. [Concomitant]
     Active Substance: LEVOTHYROXINE SODIUM
  17. VITAMIN D [Concomitant]
     Active Substance: CHOLECALCIFEROL
  18. CYCLOBENZAPRINE [Concomitant]
     Active Substance: CYCLOBENZAPRINE
  19. NEURONTIN [Concomitant]
     Active Substance: GABAPENTIN
  20. ISONIAZID. [Concomitant]
     Active Substance: ISONIAZID
  21. LIDOCAINE. [Concomitant]
     Active Substance: LIDOCAINE
  22. FOLBIC [Concomitant]
     Active Substance: CYANOCOBALAMIN\FOLIC ACID\PYRIDOXINE

REACTIONS (3)
  - Uveitis [Unknown]
  - Incorrect dose administered [Not Recovered/Not Resolved]
  - Blood pressure increased [Unknown]

NARRATIVE: CASE EVENT DATE: 20151014
